FAERS Safety Report 5723664-9 (Version None)
Quarter: 2008Q2

REPORT INFORMATION
  Report Type: 
  Country: None (occurrence: None)
  Receive Date: 20080429
  Receipt Date: 20080429
  Transmission Date: 20081010
  Serious: Yes (Hospitalization)
  Sender: FDA-Public Use
  Company Number: None

PATIENT
  Age: 50 Year
  Sex: Male
  Weight: 67 kg

DRUGS (1)
  1. VARENICLINE [Suspect]
     Dosage: 1MG  BID  PO
     Route: 048
     Dates: start: 20080108, end: 20080310

REACTIONS (2)
  - HALLUCINATION [None]
  - SUICIDAL IDEATION [None]
